FAERS Safety Report 8377175-5 (Version None)
Quarter: 2012Q2

REPORT INFORMATION
  Report Type: 
  Country: None (occurrence: None)
  Receive Date: 20120522
  Receipt Date: 20120514
  Transmission Date: 20120825
  Serious: Yes (Other)
  Sender: FDA-Public Use
  Company Number: JP-ROCHE-1063534

PATIENT
  Age: 65 Year
  Sex: Female

DRUGS (1)
  1. LUCENTIS [Suspect]
     Indication: AGE-RELATED MACULAR DEGENERATION
     Route: 050
     Dates: start: 20120313

REACTIONS (3)
  - FOREIGN BODY IN EYE [None]
  - PRODUCT QUALITY ISSUE [None]
  - ENDOPHTHALMITIS [None]
